FAERS Safety Report 18243746 (Version 3)
Quarter: 2020Q3

REPORT INFORMATION
  Report Type: Spontaneous
  Country: US (occurrence: US)
  Receive Date: 20200908
  Receipt Date: 20200918
  Transmission Date: 20201103
  Serious: Yes (Hospitalization)
  Sender: FDA-Public Use
  Company Number: US-PFIZER INC-2020346641

PATIENT

DRUGS (1)
  1. ADVIL [Suspect]
     Active Substance: IBUPROFEN
     Dosage: UNK

REACTIONS (9)
  - Pain in extremity [Unknown]
  - Micturition urgency [Unknown]
  - Fall [Unknown]
  - Blood urine present [Unknown]
  - Abdominal pain upper [Unknown]
  - Arthritis [Unknown]
  - Renal disorder [Unknown]
  - Myalgia [Unknown]
  - Renal injury [Unknown]
